FAERS Safety Report 5464964-X (Version None)
Quarter: 2007Q3

REPORT INFORMATION
  Report Type: 
  Country: None (occurrence: None)
  Receive Date: 20070921
  Receipt Date: 20070912
  Transmission Date: 20080115
  Serious: Yes (Other)
  Sender: FDA-Public Use
  Company Number: FR-PFIZER INC-2007077340

PATIENT
  Sex: Male

DRUGS (1)
  1. ZOXAN LP [Suspect]

REACTIONS (3)
  - COLITIS ISCHAEMIC [None]
  - DIVERTICULUM INTESTINAL [None]
  - MEDICATION RESIDUE [None]
